FAERS Safety Report 4703563-1 (Version None)
Quarter: 2005Q2

REPORT INFORMATION
  Report Type: 
  Country: None (occurrence: None)
  Receive Date: 20050628
  Receipt Date: 20050610
  Transmission Date: 20051028
  Serious: Yes (Other)
  Sender: FDA-Public Use
  Company Number: US_0503113884

PATIENT
  Age: 37 Year
  Sex: Male
  Weight: 74 kg

DRUGS (7)
  1. HUMULIN L [Suspect]
     Indication: DIABETES MELLITUS
     Dosage: 10 U/2 DAY
  2. HUMALOG [Suspect]
     Indication: DIABETES MELLITUS
     Dates: start: 19970101
  3. ASPIRIN [Concomitant]
  4. CENTRUM [Concomitant]
  5. PREVACID [Concomitant]
  6. VITAMIN E [Concomitant]
  7. HUMULIN-HUMAN ULTRALENTEEE INSULIN (RDNA) [Suspect]

REACTIONS (21)
  - AMNESIA [None]
  - ANXIETY [None]
  - BIPOLAR DISORDER [None]
  - BLOOD GLUCOSE DECREASED [None]
  - BLOOD GLUCOSE INCREASED [None]
  - CEREBRAL DISORDER [None]
  - COMA [None]
  - COUGH [None]
  - DEPRESSED MOOD [None]
  - DYSCALCULIA [None]
  - DYSPHONIA [None]
  - DYSURIA [None]
  - IMPAIRED WORK ABILITY [None]
  - LOSS OF CONSCIOUSNESS [None]
  - NASAL CONGESTION [None]
  - NASAL SEPTUM DEVIATION [None]
  - POSTNASAL DRIP [None]
  - RHINITIS [None]
  - SNORING [None]
  - TENDON INJURY [None]
  - WEIGHT DECREASED [None]
